FAERS Safety Report 18042894 (Version 2)
Quarter: 2020Q3

REPORT INFORMATION
  Report Type: Spontaneous
  Country: JP (occurrence: JP)
  Receive Date: 20200720
  Receipt Date: 20200723
  Transmission Date: 20201103
  Serious: Yes (Hospitalization, Other)
  Sender: FDA-Public Use
  Company Number: JP-PFIZER INC-2020272239

PATIENT
  Age: 33 Year
  Sex: Female

DRUGS (2)
  1. DOXORUBICIN HCL [Suspect]
     Active Substance: DOXORUBICIN HYDROCHLORIDE
     Indication: EXTRASKELETAL OSTEOSARCOMA
     Dosage: UNK, CYCLIC (5 {CYCLICAL})
  2. CISPLATIN. [Suspect]
     Active Substance: CISPLATIN
     Indication: EXTRASKELETAL OSTEOSARCOMA
     Dosage: UNK, CYCLIC (5 {CYCLICAL})

REACTIONS (1)
  - Renal impairment [Unknown]
